FAERS Safety Report 6060762-7 (Version None)
Quarter: 2009Q1

REPORT INFORMATION
  Report Type: 
  Country: None (occurrence: None)
  Receive Date: 20090129
  Receipt Date: 20090129
  Transmission Date: 20090719
  Serious: Yes (Disabling)
  Sender: FDA-Public Use
  Company Number: None

PATIENT
  Sex: Male
  Weight: 109.3169 kg

DRUGS (1)
  1. ROPINIROLE [Suspect]
     Indication: PARKINSON'S DISEASE
     Dosage: 4MG 4 TIMES A DAY PO
     Route: 048
     Dates: start: 20081221

REACTIONS (4)
  - CONDITION AGGRAVATED [None]
  - FREEZING PHENOMENON [None]
  - MOBILITY DECREASED [None]
  - PARKINSON'S DISEASE [None]
